FAERS Safety Report 12890288 (Version 2)
Quarter: 2016Q4

REPORT INFORMATION
  Report Type: Report from Study
  Country: None (occurrence: US)
  Receive Date: 20161027
  Receipt Date: 20161219
  Transmission Date: 20170207
  Serious: Yes (Other)
  Sender: FDA-Public Use
  Company Number: US-ABBVIE-16P-163-1764572-00

PATIENT
  Age: 30 Year
  Sex: Female
  Weight: 99.43 kg

DRUGS (1)
  1. LUPRON DEPOT [Suspect]
     Active Substance: LEUPROLIDE ACETATE
     Indication: UTERINE LEIOMYOMA
     Route: 050
     Dates: start: 201411, end: 201504

REACTIONS (10)
  - Menorrhagia [Not Recovered/Not Resolved]
  - Pelvic pain [Not Recovered/Not Resolved]
  - Infertility [Not Recovered/Not Resolved]
  - Vitamin D decreased [Unknown]
  - Sinus disorder [Recovered/Resolved]
  - Hot flush [Recovered/Resolved]
  - Anxiety [Recovered/Resolved]
  - Uterine leiomyoma [Not Recovered/Not Resolved]
  - Sinus disorder [Unknown]
  - Mood swings [Recovered/Resolved]

NARRATIVE: CASE EVENT DATE: 20141101
